FAERS Safety Report 18875738 (Version 2)
Quarter: 2021Q1

REPORT INFORMATION
  Report Type: Report from Study
  Country: US (occurrence: US)
  Receive Date: 20210211
  Receipt Date: 20210304
  Transmission Date: 20210420
  Serious: Yes (Hospitalization, Other)
  Sender: FDA-Public Use
  Company Number: US-GILEAD-2021-0516678

PATIENT
  Age: 60 Year
  Sex: Female

DRUGS (1)
  1. AMBRISENTAN [Suspect]
     Active Substance: AMBRISENTAN
     Indication: PULMONARY ARTERIAL HYPERTENSION
     Dosage: 5 MG, QD
     Route: 065
     Dates: start: 20170405

REACTIONS (7)
  - Dialysis [Unknown]
  - Gait inability [Unknown]
  - Intentional dose omission [Recovered/Resolved]
  - Pain [Unknown]
  - Central venous catheterisation [Unknown]
  - Pulmonary arterial hypertension [Unknown]
  - General physical health deterioration [Unknown]

NARRATIVE: CASE EVENT DATE: 202101
